FAERS Safety Report 13455300 (Version 1)
Quarter: 2017Q2

REPORT INFORMATION
  Report Type: Spontaneous
  Country: US (occurrence: US)
  Receive Date: 20170419
  Receipt Date: 20170419
  Transmission Date: 20170830
  Serious: No
  Sender: FDA-Public Use
  Company Number: US-PFIZER INC-2017162460

PATIENT
  Age: 47 Year
  Sex: Male

DRUGS (2)
  1. BOSULIF [Suspect]
     Active Substance: BOSUTINIB MONOHYDRATE
     Dosage: 100 MG, DAILY (QD)
     Route: 048
     Dates: start: 20170331
  2. ICLUSIG [Concomitant]
     Active Substance: PONATINIB
     Dosage: UNK

REACTIONS (3)
  - Muscle spasms [Unknown]
  - White blood cell count increased [Unknown]
  - Red blood cell count decreased [Unknown]
